FAERS Safety Report 19126215 (Version 1)
Quarter: 2021Q2

REPORT INFORMATION
  Report Type: Spontaneous
  Country: US (occurrence: US)
  Receive Date: 20210412
  Receipt Date: 20210412
  Transmission Date: 20210717
  Serious: No
  Sender: FDA-Public Use
  Company Number: US-BAUSCH-BL-2021-004575

PATIENT
  Age: 61 Year
  Sex: Female

DRUGS (1)
  1. SYPRINE [Suspect]
     Active Substance: TRIENTINE HYDROCHLORIDE
     Indication: PRODUCT USED FOR UNKNOWN INDICATION
     Dosage: 4 CAPSULES (1000 MG) DAILY FOR 30 DAYS
     Route: 048

REACTIONS (2)
  - Therapy interrupted [Unknown]
  - COVID-19 [Unknown]
